FAERS Safety Report 10521961 (Version 1)
Quarter: 2014Q4

REPORT INFORMATION
  Report Type: Spontaneous
  Country: US (occurrence: None)
  Receive Date: 20141014
  Receipt Date: 20141014
  Transmission Date: 20150528
  Serious: Yes (Other)
  Sender: FDA-Public Use
  Company Number: None

PATIENT
  Age: 05 Year
  Sex: Male
  Weight: 16.5 kg

DRUGS (1)
  1. NEULASTA [Suspect]
     Active Substance: PEGFILGRASTIM
     Indication: ADJUVANT THERAPY
     Route: 058

REACTIONS (2)
  - Physical product label issue [None]
  - Incorrect dose administered [None]

NARRATIVE: CASE EVENT DATE: 20141004
